FAERS Safety Report 8941840 (Version 1)
Quarter: 2012Q4

REPORT INFORMATION
  Report Type: 
  Country: FR (occurrence: FR)
  Receive Date: 20121203
  Receipt Date: 20121203
  Transmission Date: 20130627
  Serious: Yes (Other)
  Sender: FDA-Public Use
  Company Number: PHHY2012FR108899

PATIENT
  Age: 67 Year
  Sex: Female

DRUGS (1)
  1. VALPROIC ACID [Suspect]
     Indication: EPILEPSY
     Dosage: 1.5 g, daily

REACTIONS (22)
  - Status epilepticus [Unknown]
  - Parkinson^s disease [Unknown]
  - Attention deficit/hyperactivity disorder [Unknown]
  - Hypertonia [Unknown]
  - Coordination abnormal [Unknown]
  - Parkinsonian gait [Unknown]
  - Freezing phenomenon [Unknown]
  - Abasia [Unknown]
  - Feeling abnormal [Unknown]
  - Akinesia [Unknown]
  - Orthostatic tremor [Unknown]
  - Tremor [Unknown]
  - Extrapyramidal disorder [Unknown]
  - Echolalia [Unknown]
  - Abnormal behaviour [Unknown]
  - Autonomic neuropathy [Unknown]
  - Aphasia [Unknown]
  - Dementia [Unknown]
  - Cerebral atrophy [Unknown]
  - Hypoperfusion [Unknown]
  - Cerebral disorder [Unknown]
  - Arthritis [Unknown]
